FAERS Safety Report 25739022 (Version 2)
Quarter: 2025Q4

REPORT INFORMATION
  Report Type: Spontaneous
  Country: JP (occurrence: JP)
  Receive Date: 20250829
  Receipt Date: 20251016
  Transmission Date: 20260118
  Serious: Yes (Death, Other)
  Sender: UNITED THERAPEUTICS
  Company Number: JP-UNITED THERAPEUTICS-UNT-2025-028647

PATIENT
  Age: 54 Year
  Sex: Female

DRUGS (2)
  1. TREPROSTINIL [Suspect]
     Active Substance: TREPROSTINIL
     Indication: Pulmonary hypertension
     Dosage: 36 ?G, QID
     Dates: start: 20250528, end: 20250823
  2. TREPROSTINIL [Suspect]
     Active Substance: TREPROSTINIL
     Indication: Interstitial lung disease

REACTIONS (3)
  - Interstitial lung disease [Fatal]
  - Condition aggravated [Fatal]
  - Device malfunction [Unknown]

NARRATIVE: CASE EVENT DATE: 20250101
